FAERS Safety Report 7622998-0 (Version None)
Quarter: 2011Q3

REPORT INFORMATION
  Report Type: 
  Country: None (occurrence: None)
  Receive Date: 20110720
  Receipt Date: 20110712
  Transmission Date: 20111222
  Serious: Yes (Other)
  Sender: FDA-Public Use
  Company Number: US-SANOFI-AVENTIS-2011SA044537

PATIENT
  Sex: Male

DRUGS (4)
  1. OPTICLICK [Suspect]
     Indication: TYPE 2 DIABETES MELLITUS
  2. SOLOSTAR [Suspect]
     Indication: TYPE 1 DIABETES MELLITUS
     Dates: start: 20070101
  3. LANTUS [Suspect]
     Indication: TYPE 2 DIABETES MELLITUS
     Dosage: DOSE:56 UNIT(S)
     Route: 058
     Dates: start: 20070101
  4. NOVOLOG [Concomitant]

REACTIONS (4)
  - NERVE INJURY [None]
  - DYSPNOEA [None]
  - CHEST PAIN [None]
  - CARDIAC OPERATION [None]
